FAERS Safety Report 16908690 (Version 2)
Quarter: 2020Q1

REPORT INFORMATION
  Report Type: Spontaneous
  Country: US (occurrence: US)
  Receive Date: 20191011
  Receipt Date: 20200113
  Transmission Date: 20200409
  Serious: No
  Sender: FDA-Public Use
  Company Number: US-STEMLINE THERAPEUTICS, INC.-2019ST000067

PATIENT
  Sex: Male
  Weight: 93.52 kg

DRUGS (1)
  1. ELZONRIS [Suspect]
     Active Substance: TAGRAXOFUSP-ERZS
     Indication: LEUKAEMIA
     Dosage: 5 SESSIONS
     Route: 042

REACTIONS (1)
  - Cough [Recovered/Resolved]
